FAERS Safety Report 9966493 (Version 2)
Quarter: 2014Q1

REPORT INFORMATION
  Report Type: Spontaneous
  Country: PR (occurrence: PR)
  Receive Date: 20140305
  Receipt Date: 20140305
  Transmission Date: 20141002
  Serious: No
  Sender: FDA-Public Use
  Company Number: PR-ABBVIE-12P-131-1011855-00

PATIENT
  Sex: Male
  Weight: 59.93 kg

DRUGS (10)
  1. HUMIRA [Suspect]
     Indication: PSORIASIS
     Route: 058
     Dates: end: 20121105
  2. HUMIRA [Suspect]
     Route: 058
  3. ALBUTEROL SULFATE [Concomitant]
     Indication: CHRONIC OBSTRUCTIVE PULMONARY DISEASE
     Route: 048
  4. ALBUTEROL PUMP [Concomitant]
     Indication: CHRONIC OBSTRUCTIVE PULMONARY DISEASE
  5. ADVAIR [Concomitant]
     Indication: CHRONIC OBSTRUCTIVE PULMONARY DISEASE
     Dosage: 250/50MCG
     Route: 048
  6. NORVASC [Concomitant]
     Indication: HYPERTENSION
     Route: 048
  7. COZAAR [Concomitant]
     Indication: HYPERTENSION
     Route: 048
  8. ZOCOR [Concomitant]
     Indication: HYPERTENSION
     Route: 048
  9. INSULIN INJECTION [Concomitant]
     Indication: DIABETES MELLITUS
     Route: 058
  10. METFORMIN [Concomitant]
     Indication: DIABETES MELLITUS
     Route: 048

REACTIONS (2)
  - Erythema [Unknown]
  - Skin exfoliation [Unknown]
